FAERS Safety Report 16479256 (Version 2)
Quarter: 2020Q3

REPORT INFORMATION
  Report Type: Spontaneous
  Country: US (occurrence: US)
  Receive Date: 20190626
  Receipt Date: 20200710
  Transmission Date: 20201102
  Serious: Yes (Other)
  Sender: FDA-Public Use
  Company Number: US-SAOL THERAPEUTICS-2019SAO00100

PATIENT
  Age: 49 Year
  Sex: Male

DRUGS (5)
  1. LIORESAL [Suspect]
     Active Substance: BACLOFEN
     Dosage: 100 ?G, \DAY; SC
     Route: 037
     Dates: start: 20191023
  2. LIORESAL [Suspect]
     Active Substance: BACLOFEN
     Dosage: UNK ^DOSE INCREASES^
     Route: 037
  3. LIORESAL [Suspect]
     Active Substance: BACLOFEN
     Dosage: 1080 ?G, \DAY
     Route: 037
  4. LIORESAL [Suspect]
     Active Substance: BACLOFEN
     Dosage: 760 ?G, \DAY; FLEX
     Route: 037
     Dates: end: 20191023
  5. LIORESAL [Suspect]
     Active Substance: BACLOFEN
     Dosage: 100 ?G PER DAY
     Route: 037

REACTIONS (4)
  - Unevaluable event [Recovered/Resolved]
  - Complication associated with device [Recovered/Resolved]
  - Therapeutic response decreased [Recovered/Resolved]
  - Device physical property issue [Recovered/Resolved]

NARRATIVE: CASE EVENT DATE: 20191023
